FAERS Safety Report 4648172-8 (Version None)
Quarter: 2005Q2

REPORT INFORMATION
  Report Type: 
  Country: None (occurrence: None)
  Receive Date: 20050331
  Receipt Date: 20050121
  Transmission Date: 20051028
  Serious: No
  Sender: FDA-Public Use
  Company Number: 05P-163-0289770-00

PATIENT
  Age: 79 Year
  Sex: Male
  Weight: 48.5349 kg

DRUGS (6)
  1. HUMIRA [Suspect]
     Indication: RHEUMATOID ARTHRITIS
     Dosage: 40 MG, 1 IN 2 WK, SUBCUTANEOUS
     Route: 058
     Dates: start: 20020101, end: 20050104
  2. HUMIRA [Suspect]
     Indication: RHEUMATOID ARTHRITIS
     Dosage: 40 MG, 1 IN 2 WK, SUBCUTANEOUS
     Route: 058
     Dates: start: 20050118
  3. LOTRINEX [Concomitant]
  4. FOLATE SODIUM [Concomitant]
  5. OMEPRAZOLE [Concomitant]
  6. METHOTREXATE SODIUM [Concomitant]

REACTIONS (1)
  - PARONYCHIA [None]
